FAERS Safety Report 18673640 (Version 3)
Quarter: 2023Q1

REPORT INFORMATION
  Report Type: Other
  Country: CA (occurrence: CA)
  Receive Date: 20201229
  Receipt Date: 20230316
  Transmission Date: 20230417
  Serious: Yes (Other)
  Sender: FDA-Public Use
  Company Number: CA-CELLTRION INC.-2020CA034442

PATIENT

DRUGS (22)
  1. RITUXIMAB [Suspect]
     Active Substance: RITUXIMAB
     Indication: Rheumatoid arthritis
     Dosage: 1000 MILLIGRAM
     Route: 042
  2. RITUXIMAB [Suspect]
     Active Substance: RITUXIMAB
     Dosage: 1000 MILLIGRAM
     Route: 042
  3. ACTEMRA [Suspect]
     Active Substance: TOCILIZUMAB
     Indication: Rheumatoid arthritis
     Dosage: 544 MILLIGRAM, CYCLICAL
     Route: 042
  4. ACTEMRA [Suspect]
     Active Substance: TOCILIZUMAB
     Indication: Rheumatoid arthritis
     Dosage: 560.0 MILLIGRAM, CYCLICAL
     Route: 042
  5. ACTEMRA [Suspect]
     Active Substance: TOCILIZUMAB
     Dosage: 552.0 MILLIGRAM
     Route: 042
  6. ACTEMRA [Suspect]
     Active Substance: TOCILIZUMAB
     Dosage: 552.0 MILLIGRAM, CYCLICAL
     Route: 042
  7. ACTEMRA [Suspect]
     Active Substance: TOCILIZUMAB
     Dosage: 536.0 MILLIGRAM, CYCLICAL
     Route: 042
  8. ACTEMRA [Suspect]
     Active Substance: TOCILIZUMAB
     Dosage: 560.0 MILLIGRAM, CYCLICAL
     Route: 042
  9. ACTEMRA [Suspect]
     Active Substance: TOCILIZUMAB
     Dosage: 576.0 MILLIGRAM, CYCLICAL
     Route: 042
  10. ACTEMRA [Suspect]
     Active Substance: TOCILIZUMAB
     Dosage: 568.0 MILLIGRAM, CYCLICAL
     Route: 042
  11. ACTEMRA [Suspect]
     Active Substance: TOCILIZUMAB
     Indication: Rheumatoid arthritis
     Dosage: 544.0 MILLIGRAM, CYCLICAL
     Route: 042
  12. METHOTREXATE [Suspect]
     Active Substance: METHOTREXATE
     Indication: Product used for unknown indication
     Route: 042
  13. ACETAMINOPHEN [Concomitant]
     Active Substance: ACETAMINOPHEN
     Indication: Premedication
     Dosage: 650 MILLIGRAM
     Route: 048
  14. CELEBREX [Concomitant]
     Active Substance: CELECOXIB
     Route: 065
  15. DIPHENHYDRAMINE [Concomitant]
     Active Substance: DIPHENHYDRAMINE
     Indication: Premedication
     Dosage: 50 MILLIGRAM
     Route: 048
  16. FOLIC ACID [Concomitant]
     Active Substance: FOLIC ACID
  17. FERROUS SULFATE ANHYDROUS [Concomitant]
     Active Substance: FERROUS SULFATE ANHYDROUS
  18. FERROUS SULFATE ANHYDROUS [Concomitant]
     Active Substance: FERROUS SULFATE ANHYDROUS
     Dosage: UNK
  19. LEVOLEUCOVORIN CALCIUM [Concomitant]
     Active Substance: LEVOLEUCOVORIN CALCIUM
  20. METHYLPREDNISOLONE [Concomitant]
     Active Substance: METHYLPREDNISOLONE
     Indication: Premedication
     Dosage: 100 MILLIGRAM
     Route: 042
  21. NAPROXEN [Concomitant]
     Active Substance: NAPROXEN
  22. TRANEXAMIC ACID [Concomitant]
     Active Substance: TRANEXAMIC ACID
     Indication: Heavy menstrual bleeding
     Dosage: 500 MILLIGRAM, 3 EVERY 1 DAYS
     Route: 048

REACTIONS (16)
  - Anaemia [Not Recovered/Not Resolved]
  - Disease recurrence [Not Recovered/Not Resolved]
  - Drug intolerance [Not Recovered/Not Resolved]
  - Fibroma [Not Recovered/Not Resolved]
  - Heavy menstrual bleeding [Not Recovered/Not Resolved]
  - Ill-defined disorder [Not Recovered/Not Resolved]
  - Malaise [Not Recovered/Not Resolved]
  - Uterine disorder [Not Recovered/Not Resolved]
  - Vulvovaginal discomfort [Not Recovered/Not Resolved]
  - Weight decreased [Not Recovered/Not Resolved]
  - Arthralgia [Not Recovered/Not Resolved]
  - Bronchitis [Not Recovered/Not Resolved]
  - Gastric disorder [Not Recovered/Not Resolved]
  - Infusion related reaction [Not Recovered/Not Resolved]
  - Nausea [Not Recovered/Not Resolved]
  - Therapeutic product effect decreased [Not Recovered/Not Resolved]
